FAERS Safety Report 8879393 (Version 1)
Quarter: 2012Q4

REPORT INFORMATION
  Report Type: 
  Country: US (occurrence: US)
  Receive Date: 20121101
  Receipt Date: 20121101
  Transmission Date: 20130627
  Serious: No
  Sender: FDA-Public Use
  Company Number: US-BIOGENIDEC-2012BI048511

PATIENT
  Age: 30 Year
  Sex: Female

DRUGS (1)
  1. TYSABRI [Suspect]
     Indication: MULTIPLE SCLEROSIS
     Route: 042
     Dates: start: 20100326

REACTIONS (5)
  - Body temperature [Recovered/Resolved]
  - Paranasal sinus hypersecretion [Recovered/Resolved]
  - Tonsillar inflammation [Recovered/Resolved]
  - Oropharyngeal pain [Recovered/Resolved]
  - Infection [Recovered/Resolved]
